FAERS Safety Report 6939570-8 (Version None)
Quarter: 2010Q3

REPORT INFORMATION
  Report Type: 
  Country: None (occurrence: None)
  Receive Date: 20100819
  Receipt Date: 20100813
  Transmission Date: 20110219
  Serious: Yes (Other)
  Sender: FDA-Public Use
  Company Number: 2010SP044174

PATIENT
  Age: 31 Year
  Sex: Female

DRUGS (2)
  1. IMPLANON [Suspect]
     Indication: CONTRACEPTION
     Dosage: 68 MG;SBDE
     Route: 059
     Dates: start: 20040613, end: 20070601
  2. IMPLANON [Suspect]

REACTIONS (8)
  - AMENORRHOEA [None]
  - DEVICE BREAKAGE [None]
  - DEVICE DIFFICULT TO USE [None]
  - DIZZINESS [None]
  - NAUSEA [None]
  - PAIN IN EXTREMITY [None]
  - SENSORY DISTURBANCE [None]
  - SYNCOPE [None]
